FAERS Safety Report 13089190 (Version 3)
Quarter: 2017Q2

REPORT INFORMATION
  Report Type: Spontaneous
  Country: US (occurrence: US)
  Receive Date: 20170105
  Receipt Date: 20170615
  Transmission Date: 20170830
  Serious: Yes (Death, Life-Threatening, Hospitalization)
  Sender: FDA-Public Use
  Company Number: US-SAOL THERAPEUTICS-2016SAO01103

PATIENT
  Age: 30 Year
  Sex: Male

DRUGS (9)
  1. LIORESAL [Suspect]
     Active Substance: BACLOFEN
     Dosage: 270.1 ?G, \DAY
     Dates: start: 20160927
  2. FAMOTIDINE. [Concomitant]
     Active Substance: FAMOTIDINE
  3. DEXTROMETHORPHAN [Concomitant]
     Active Substance: DEXTROMETHORPHAN
  4. OLOPATADINE. [Concomitant]
     Active Substance: OLOPATADINE
  5. CETIRIZINE [Concomitant]
     Active Substance: CETIRIZINE HYDROCHLORIDE
  6. TEGRETOL [Concomitant]
     Active Substance: CARBAMAZEPINE
  7. GABAPENTIN. [Concomitant]
     Active Substance: GABAPENTIN
  8. CLONAZEPAM. [Concomitant]
     Active Substance: CLONAZEPAM
  9. POLYETHYLENE GLYCOL [Concomitant]
     Active Substance: POLYETHYLENE GLYCOLS

REACTIONS (6)
  - Device failure [Recovered/Resolved]
  - Sepsis [Fatal]
  - Brain herniation [Unknown]
  - Hypothermia [Unknown]
  - Respiratory arrest [Unknown]
  - Pain in extremity [Unknown]

NARRATIVE: CASE EVENT DATE: 201609
